FAERS Safety Report 12539895 (Version 2)
Quarter: 2016Q3

REPORT INFORMATION
  Report Type: Spontaneous
  Country: US (occurrence: US)
  Receive Date: 20160708
  Receipt Date: 20160922
  Transmission Date: 20161109
  Serious: No
  Sender: FDA-Public Use
  Company Number: US-LEO PHARMA-242931

PATIENT
  Age: 60 Year
  Sex: Female

DRUGS (5)
  1. VAGIFEM [Concomitant]
     Active Substance: ESTRADIOL
     Indication: PRODUCT USED FOR UNKNOWN INDICATION
  2. PICATO [Suspect]
     Active Substance: INGENOL MEBUTATE
     Indication: ACTINIC KERATOSIS
     Route: 061
     Dates: start: 20160621, end: 20160623
  3. MEDROL DOSE PACK [Concomitant]
     Active Substance: METHYLPREDNISOLONE
     Indication: BURSITIS
     Route: 048
     Dates: start: 20160623, end: 20160624
  4. PICATO [Suspect]
     Active Substance: INGENOL MEBUTATE
     Route: 061
     Dates: start: 20160623
  5. PICATO [Suspect]
     Active Substance: INGENOL MEBUTATE
     Route: 061
     Dates: start: 20160627, end: 20160629

REACTIONS (10)
  - Application site scab [Recovered/Resolved]
  - Application site erythema [Recovered/Resolved]
  - Application site pain [Recovered/Resolved]
  - Application site warmth [Recovered/Resolved]
  - Application site dryness [Recovered/Resolved]
  - Inappropriate schedule of drug administration [Unknown]
  - Drug administered at inappropriate site [Unknown]
  - Application site induration [Recovered/Resolved]
  - Drug administration error [Unknown]
  - Application site swelling [Recovered/Resolved]

NARRATIVE: CASE EVENT DATE: 20160621
